FAERS Safety Report 17511233 (Version 2)
Quarter: 2020Q1

REPORT INFORMATION
  Report Type: Spontaneous
  Country: IT (occurrence: IT)
  Receive Date: 20200306
  Receipt Date: 20200318
  Transmission Date: 20200409
  Serious: Yes (Hospitalization)
  Sender: FDA-Public Use
  Company Number: NVSC2020IT062191

PATIENT
  Age: 33 Year
  Sex: Male

DRUGS (2)
  1. SODIUM ALGINATE [Suspect]
     Active Substance: SODIUM ALGINATE
     Indication: HIATUS HERNIA
     Dosage: UNK
     Route: 065
  2. LANSOPRAZOLE. [Suspect]
     Active Substance: LANSOPRAZOLE
     Indication: DYSPEPSIA
     Dosage: 30 MG, QD
     Route: 065
     Dates: end: 201708

REACTIONS (7)
  - Nocturia [Unknown]
  - Hypomagnesaemia [Unknown]
  - Gitelman^s syndrome [Unknown]
  - Diarrhoea [Unknown]
  - Weight decreased [Unknown]
  - Asthenia [Unknown]
  - Hypokalaemia [Unknown]
